FAERS Safety Report 25023141 (Version 1)
Quarter: 2025Q1

REPORT INFORMATION
  Report Type: Spontaneous
  Country: FR (occurrence: FR)
  Receive Date: 20250228
  Receipt Date: 20250228
  Transmission Date: 20250409
  Serious: Yes (Disabling)
  Sender: MYLAN
  Company Number: FR-PPDUS-2024RHM000682

PATIENT
  Age: 36 Year
  Sex: Female
  Weight: 103 kg

DRUGS (14)
  1. ESTRADIOL HEMIHYDRATE [Suspect]
     Active Substance: ESTRADIOL HEMIHYDRATE
     Indication: Gonadotrophin deficiency
     Dosage: 75 MICROGRAM, QD
  2. ESTRADIOL HEMIHYDRATE [Suspect]
     Active Substance: ESTRADIOL HEMIHYDRATE
     Dosage: 50 MICROGRAM, QW
     Dates: start: 20250131
  3. IMCIVREE [Suspect]
     Active Substance: SETMELANOTIDE
     Indication: Gene mutation
     Dosage: 1 MILLIGRAM, QD
     Dates: start: 20240919
  4. IMCIVREE [Suspect]
     Active Substance: SETMELANOTIDE
     Dosage: 3 MILLIGRAM, QD
     Dates: start: 20241022
  5. IMCIVREE [Suspect]
     Active Substance: SETMELANOTIDE
     Dosage: 2 MILLIGRAM, QD
     Dates: start: 20250131
  6. PROGESTERONE [Concomitant]
     Active Substance: PROGESTERONE
     Indication: Gonadotrophin deficiency
  7. DESMOPRESSIN ACETATE [Concomitant]
     Active Substance: DESMOPRESSIN ACETATE
     Indication: Diabetes insipidus
     Dosage: 680 MICROGRAM, QD (IN THE MORNING)
     Dates: start: 2019
  8. LEVOTHYROXINE [Concomitant]
     Active Substance: LEVOTHYROXINE
     Indication: Thyroid hormones decreased
     Dosage: 162.5 MICROGRAM, QD
  9. LEVOTHYROXINE [Concomitant]
     Active Substance: LEVOTHYROXINE
     Dosage: 150 MICROGRAM, QD
     Dates: start: 20250131
  10. HYDROCORTISONE [Concomitant]
     Active Substance: HYDROCORTISONE
     Indication: Adrenocorticotropic hormone deficiency
     Dosage: 20 MILLIGRAM, QD (1 TABLET IN THE MORNING AND AT LUNCH)
     Dates: start: 2019
  11. VESICARE [Concomitant]
     Active Substance: SOLIFENACIN SUCCINATE
     Indication: Hypertonic bladder
  12. DOSTINEX [Concomitant]
     Active Substance: CABERGOLINE
     Indication: Hyperprolactinaemia
     Dosage: 0.5 MILLIGRAM, Q2W (15 DAYS)
     Dates: start: 2022
  13. PROPRANOLOL [Concomitant]
     Active Substance: PROPRANOLOL HYDROCHLORIDE
     Indication: Extrasystoles
     Dosage: 0.5 DOSAGE FORM, QD
     Dates: start: 2023
  14. DULAGLUTIDE [Concomitant]
     Active Substance: DULAGLUTIDE
     Indication: Obesity
     Dosage: 3 MILLIGRAM, QW

REACTIONS (3)
  - Asthenia [Unknown]
  - Heavy menstrual bleeding [Unknown]
  - Intermenstrual bleeding [Not Recovered/Not Resolved]

NARRATIVE: CASE EVENT DATE: 20241015
